FAERS Safety Report 15251874 (Version 1)
Quarter: 2018Q3

REPORT INFORMATION
  Report Type: Spontaneous
  Country: US (occurrence: US)
  Receive Date: 20180807
  Receipt Date: 20180807
  Transmission Date: 20181010
  Serious: No
  Sender: FDA-Public Use
  Company Number: US-LUNDBECK-DKLU2052145

PATIENT
  Sex: Female

DRUGS (3)
  1. NORTHERA [Suspect]
     Active Substance: DROXIDOPA
     Indication: ORTHOSTATIC HYPOTENSION
     Dosage: SCHEDULE B, TITRATION WAS HALTED BEFORE MAINTENANCE DOSE
     Route: 048
  2. NORTHERA [Suspect]
     Active Substance: DROXIDOPA
     Indication: AUTONOMIC NEUROPATHY
     Dosage: SCHEDULE B, TITRATION WAS HALTED BEFORE MAINTENANCE DOSE
     Route: 048
     Dates: start: 20180621
  3. NORTHERA [Suspect]
     Active Substance: DROXIDOPA
     Dosage: SCHEDULE B, TITRATION WAS HALTED BEFORE MAINTENANCE DOSE
     Route: 048

REACTIONS (4)
  - Therapeutic response decreased [Unknown]
  - Blood pressure fluctuation [Unknown]
  - Orthostatic hypotension [Unknown]
  - Dizziness [Unknown]
